FAERS Safety Report 9928463 (Version 2)
Quarter: 2014Q2

REPORT INFORMATION
  Report Type: Report from Study
  Country: CN (occurrence: CN)
  Receive Date: 20140227
  Receipt Date: 20140502
  Transmission Date: 20141212
  Serious: Yes (Death, Hospitalization, Other)
  Sender: FDA-Public Use
  Company Number: CN-ASTELLAS-2014US001999

PATIENT
  Age: 49 Year
  Sex: Male

DRUGS (3)
  1. ERLOTINIB [Suspect]
     Indication: NON-SMALL CELL LUNG CANCER
     Route: 048
     Dates: start: 20130430
  2. ERLOTINIB [Suspect]
     Route: 048
  3. ERLOTINIB [Suspect]
     Route: 048

REACTIONS (4)
  - Malignant neoplasm progression [Fatal]
  - Movement disorder [Unknown]
  - Pleural effusion [Unknown]
  - Erythema [Recovering/Resolving]
